FAERS Safety Report 9295986 (Version 1)
Quarter: 2013Q2

REPORT INFORMATION
  Report Type: Spontaneous
  Country: US (occurrence: US)
  Receive Date: 20130517
  Receipt Date: 20130517
  Transmission Date: 20140414
  Serious: Yes (Death)
  Sender: FDA-Public Use
  Company Number: US-PFIZER INC-2013151985

PATIENT
  Sex: Male

DRUGS (3)
  1. NORVASC [Suspect]
  2. NEURONTIN [Suspect]
  3. ACCUPRIL [Suspect]

REACTIONS (1)
  - Death [Fatal]
